FAERS Safety Report 7729766-X (Version None)
Quarter: 2011Q3

REPORT INFORMATION
  Report Type: 
  Country: None (occurrence: None)
  Receive Date: 20110906
  Receipt Date: 20110823
  Transmission Date: 20111222
  Serious: Yes (Hospitalization, Other)
  Sender: FDA-Public Use
  Company Number: PL-CELGENEUS-129-50794-11080030

PATIENT
  Sex: Male

DRUGS (2)
  1. VIDAZA [Suspect]
     Route: 050
  2. VIDAZA [Suspect]
     Route: 050
     Dates: start: 20110613, end: 20110619

REACTIONS (6)
  - LUNG INFECTION PSEUDOMONAL [None]
  - GENERAL PHYSICAL CONDITION ABNORMAL [None]
  - EPILEPSY [None]
  - FEBRILE NEUTROPENIA [None]
  - RENAL FAILURE [None]
  - NEUTROPENIA [None]
